FAERS Safety Report 8066993-9 (Version None)
Quarter: 2012Q1

REPORT INFORMATION
  Report Type: 
  Country: None (occurrence: None)
  Receive Date: 20120124
  Receipt Date: 20120120
  Transmission Date: 20120608
  Serious: Yes (Hospitalization, Disabling, Other)
  Sender: FDA-Public Use
  Company Number: US-MERCK-1108USA03400

PATIENT
  Age: 60 Year
  Sex: Female
  Weight: 103 kg

DRUGS (11)
  1. FOSAMAX [Suspect]
     Route: 048
     Dates: start: 20010101, end: 20060926
  2. VITAMINS (UNSPECIFIED) [Concomitant]
     Route: 065
     Dates: start: 19900101
  3. ASCORBIC ACID [Concomitant]
     Route: 065
     Dates: start: 19900101
  4. BONIVA [Suspect]
     Indication: OSTEOPOROSIS
     Route: 065
     Dates: start: 20060926, end: 20100101
  5. ALBUTEROL [Concomitant]
     Indication: ASTHMA
     Route: 065
     Dates: start: 19970101
  6. OSTEO-BI-FLEX [Concomitant]
     Route: 065
     Dates: start: 19900101
  7. ADVAIR DISKUS 100/50 [Concomitant]
     Indication: ASTHMA
     Route: 065
     Dates: start: 20010101
  8. FOSAMAX PLUS D [Suspect]
     Route: 048
     Dates: end: 20060613
  9. FOSAMAX [Suspect]
     Indication: OSTEOPOROSIS
     Route: 048
     Dates: start: 19980101, end: 20010101
  10. VITAMIN E [Concomitant]
     Route: 065
     Dates: start: 19900101
  11. PROCARDIA [Concomitant]
     Indication: CARDIAC DISORDER
     Route: 065
     Dates: start: 19700101

REACTIONS (57)
  - DEAFNESS [None]
  - CALCULUS URETERIC [None]
  - BLOOD CHOLESTEROL INCREASED [None]
  - HEPATIC CYST [None]
  - HAEMATURIA [None]
  - DYSPNOEA EXERTIONAL [None]
  - DRUG ADMINISTRATION ERROR [None]
  - DEPRESSION [None]
  - SINUS DISORDER [None]
  - JOINT EFFUSION [None]
  - SYNOVITIS [None]
  - CATARACT [None]
  - FALL [None]
  - HYPERLIPIDAEMIA [None]
  - GASTROINTESTINAL DISORDER [None]
  - LIVER DISORDER [None]
  - LABYRINTHITIS [None]
  - HYPERCHOLESTEROLAEMIA [None]
  - HYDRONEPHROSIS [None]
  - CONSTIPATION [None]
  - BUNDLE BRANCH BLOCK LEFT [None]
  - CHOLECYSTECTOMY [None]
  - LOW TURNOVER OSTEOPATHY [None]
  - GASTROOESOPHAGEAL REFLUX DISEASE [None]
  - PAIN IN EXTREMITY [None]
  - NAUSEA [None]
  - HYPOTHYROIDISM [None]
  - FEMUR FRACTURE [None]
  - OSTEOPOROSIS [None]
  - HAEMOGLOBIN DECREASED [None]
  - VOMITING [None]
  - CONJUNCTIVAL HAEMORRHAGE [None]
  - LIMB INJURY [None]
  - HYPERTENSION [None]
  - ARTERIOSCLEROSIS [None]
  - VIITH NERVE PARALYSIS [None]
  - APPENDIX DISORDER [None]
  - HORMONE LEVEL ABNORMAL [None]
  - VERTIGO [None]
  - STRESS URINARY INCONTINENCE [None]
  - ARTHRALGIA [None]
  - SINUSITIS [None]
  - UTERINE DISORDER [None]
  - ABDOMINAL DISCOMFORT [None]
  - STRESS FRACTURE [None]
  - COLONIC POLYP [None]
  - CALCULUS URINARY [None]
  - URINARY TRACT INFECTION [None]
  - ARTHROPATHY [None]
  - BLADDER DISORDER [None]
  - MYOCARDIAL INFARCTION [None]
  - OSTEOARTHRITIS [None]
  - GRANULOMA [None]
  - TINNITUS [None]
  - MENISCUS LESION [None]
  - ABDOMINAL PAIN LOWER [None]
  - HYPERGLYCAEMIA [None]
